FAERS Safety Report 7887795-X (Version None)
Quarter: 2011Q4

REPORT INFORMATION
  Report Type: 
  Country: None (occurrence: None)
  Receive Date: 20111103
  Receipt Date: 20111024
  Transmission Date: 20120403
  Serious: Yes (Hospitalization)
  Sender: FDA-Public Use
  Company Number: JP-JNJFOC-20110711928

PATIENT
  Sex: Female
  Weight: 50 kg

DRUGS (39)
  1. PREDNISONE [Concomitant]
     Route: 048
     Dates: start: 20110330, end: 20110522
  2. DILTIAZEM HCL [Concomitant]
     Indication: HYPERTENSION
     Route: 048
     Dates: start: 20110425, end: 20110522
  3. MOBIC [Concomitant]
     Route: 048
     Dates: start: 20110501, end: 20110601
  4. HYALEIN [Concomitant]
     Route: 031
     Dates: start: 20100801, end: 20110201
  5. CELECOXIB [Concomitant]
     Route: 048
     Dates: start: 20101201, end: 20110301
  6. PROGRAF [Concomitant]
     Route: 048
     Dates: start: 20110101, end: 20110301
  7. MAGNESIUM HYDROXIDE TAB [Concomitant]
     Route: 048
     Dates: start: 20110201, end: 20110401
  8. CLINORIL [Concomitant]
     Indication: RHEUMATOID ARTHRITIS
     Route: 048
     Dates: start: 20110401, end: 20110522
  9. PREDNISONE [Concomitant]
     Indication: RHEUMATOID ARTHRITIS
     Route: 048
     Dates: start: 20110523
  10. MOBIC [Concomitant]
     Route: 048
     Dates: start: 20110801
  11. MOHRUS TAPE L [Concomitant]
     Route: 065
     Dates: start: 20100801, end: 20101201
  12. MOBIC [Concomitant]
     Route: 048
     Dates: end: 20100901
  13. EVISTA [Concomitant]
     Route: 065
     Dates: start: 20110801
  14. REMICADE [Suspect]
     Dosage: 2ND DOSE ON UNSPECIFIED DATE
     Route: 042
  15. METHOTREXATE [Suspect]
     Indication: RHEUMATOID ARTHRITIS
     Route: 048
     Dates: start: 20100801, end: 20101201
  16. LANSOPRAZOLE [Concomitant]
     Route: 048
     Dates: start: 20110801
  17. LASIX [Concomitant]
     Indication: HYPERTENSION
     Route: 048
     Dates: start: 20110401, end: 20110501
  18. EDIROL [Concomitant]
     Route: 048
     Dates: start: 20110501, end: 20110601
  19. MOBIC [Concomitant]
     Route: 048
     Dates: start: 20101001, end: 20110301
  20. ALL OTHER THERAPEUTIC PRODUCTS [Concomitant]
     Route: 048
     Dates: start: 20110201, end: 20110201
  21. CLARITHROMYCIN [Concomitant]
     Route: 048
     Dates: start: 20110201, end: 20110201
  22. MUCOSOLVAN [Concomitant]
     Route: 048
     Dates: start: 20110201, end: 20110201
  23. DICLOFENAC SODIUM [Concomitant]
     Route: 065
     Dates: start: 20110301, end: 20110401
  24. COLCHICINE [Concomitant]
     Route: 065
     Dates: end: 20110301
  25. REMICADE [Suspect]
     Indication: RHEUMATOID ARTHRITIS
     Route: 042
     Dates: start: 20110411
  26. REMICADE [Suspect]
     Dosage: 3RD DOSE
     Route: 042
     Dates: start: 20110523
  27. ISOSORBIDE DINITRATE [Concomitant]
     Route: 048
     Dates: start: 20110501, end: 20110601
  28. SULFAMETHOXAZOLE [Concomitant]
     Route: 065
     Dates: start: 20110601, end: 20110601
  29. ALENDRONATE SODIUM [Concomitant]
     Route: 048
     Dates: start: 20100801, end: 20110201
  30. LOXONIN [Concomitant]
     Route: 048
     Dates: start: 20101001, end: 20110401
  31. MOTILIUM [Concomitant]
     Route: 048
     Dates: start: 20110201, end: 20110201
  32. ALFAROL [Concomitant]
     Route: 065
     Dates: start: 20110801
  33. METHOTREXATE [Suspect]
     Route: 048
     Dates: start: 20110411, end: 20110530
  34. RABEPRAZOLE SODIUM [Concomitant]
     Route: 048
     Dates: start: 20101001, end: 20110301
  35. SUCRALFATE [Concomitant]
     Route: 048
     Dates: start: 20110201, end: 20110401
  36. AVELOX [Concomitant]
     Route: 065
     Dates: start: 20110601, end: 20110601
  37. LANSOPRAZOLE [Concomitant]
     Indication: GASTROOESOPHAGEAL REFLUX DISEASE
     Route: 048
     Dates: start: 20110201, end: 20110601
  38. FOLIC ACID [Concomitant]
     Indication: FOLATE DEFICIENCY
     Route: 048
     Dates: start: 20110501, end: 20110530
  39. VIVIANT [Concomitant]
     Route: 048
     Dates: start: 20101201, end: 20101201

REACTIONS (1)
  - PNEUMOCYSTIS JIROVECI PNEUMONIA [None]
